FAERS Safety Report 4922565-3 (Version None)
Quarter: 2006Q1

REPORT INFORMATION
  Report Type: 
  Country: None (occurrence: None)
  Receive Date: 20060224
  Receipt Date: 20060222
  Transmission Date: 20060701
  Serious: Yes (Other)
  Sender: FDA-Public Use
  Company Number: US-GLAXOSMITHKLINE-A0594800A

PATIENT
  Age: 51 Year
  Sex: Female

DRUGS (4)
  1. PAXIL [Suspect]
     Indication: DEPRESSION
     Dosage: 50MG PER DAY
     Route: 048
  2. GABITRIL [Suspect]
  3. LAMICTAL [Concomitant]
  4. PROVIGIL [Concomitant]

REACTIONS (2)
  - DYSKINESIA [None]
  - PARKINSONISM [None]
